FAERS Safety Report 8427055-1 (Version None)
Quarter: 2012Q2

REPORT INFORMATION
  Report Type: 
  Country: None (occurrence: None)
  Receive Date: 20120611
  Receipt Date: 20120605
  Transmission Date: 20120825
  Serious: Yes (Other)
  Sender: FDA-Public Use
  Company Number: US-ROCHE-1075482

PATIENT
  Age: 66 Year
  Sex: Female

DRUGS (4)
  1. AVASTIN [Suspect]
     Indication: COLORECTAL CANCER METASTATIC
     Route: 042
     Dates: start: 20120516
  2. LEUCOVORIN CALCIUM [Concomitant]
     Indication: COLORECTAL CANCER METASTATIC
     Route: 065
     Dates: start: 20120516
  3. FLUOROURACIL [Concomitant]
     Indication: COLORECTAL CANCER METASTATIC
     Route: 065
     Dates: start: 20120516
  4. IRINOTECAN HYDROCHLORIDE [Concomitant]
     Indication: COLORECTAL CANCER METASTATIC
     Route: 065
     Dates: start: 20120516

REACTIONS (2)
  - ARTERIOVENOUS MALFORMATION [None]
  - GAIT DISTURBANCE [None]
